FAERS Safety Report 9377043 (Version 2)
Quarter: 2013Q4

REPORT INFORMATION
  Report Type: Spontaneous
  Country: FR (occurrence: FR)
  Receive Date: 20130701
  Receipt Date: 20131202
  Transmission Date: 20140711
  Serious: Yes (Other)
  Sender: FDA-Public Use
  Company Number: FR-VERTEX PHARMACEUTICALS INC-2013-007561

PATIENT
  Age: 53 Year
  Sex: Female

DRUGS (5)
  1. INCIVO [Suspect]
     Indication: PRODUCT USED FOR UNKNOWN INDICATION
     Dosage: 2250 MG, QD
     Route: 065
     Dates: start: 20120803, end: 20121022
  2. COPEGUS [Suspect]
     Indication: CHRONIC HEPATITIS C
     Dosage: DOSAGE FORM: UNSPECIFIED
     Route: 065
     Dates: start: 20121108
  3. COPEGUS [Suspect]
     Dosage: DOSAGE FORM: UNSPECIFIED
     Route: 065
     Dates: start: 20121207
  4. COPEGUS [Suspect]
     Dosage: DOSAGE FORM: UNSPECIFIED
     Route: 065
     Dates: start: 20120803
  5. PEGASYS [Suspect]
     Indication: CHRONIC HEPATITIS C
     Dosage: DOSAGE FORM: UNSPECIFIED
     Route: 065
     Dates: start: 20120803

REACTIONS (2)
  - Anaemia [Recovered/Resolved]
  - Rash [Recovered/Resolved]
